FAERS Safety Report 11778154 (Version 1)
Quarter: 2015Q4

REPORT INFORMATION
  Report Type: Report from Study
  Country: DE (occurrence: DE)
  Receive Date: 20151125
  Receipt Date: 20151125
  Transmission Date: 20160304
  Serious: Yes (Hospitalization)
  Sender: FDA-Public Use
  Company Number: DE-BRISTOL-MYERS SQUIBB COMPANY-BMS-2015-078715

PATIENT
  Age: 50 Year
  Sex: Female
  Weight: 36.5 kg

DRUGS (1)
  1. BELATACEPT [Suspect]
     Active Substance: BELATACEPT
     Indication: RENAL TRANSPLANT
     Dosage: UNK, QMO
     Route: 065
     Dates: start: 20141111

REACTIONS (2)
  - Dyspnoea [Not Recovered/Not Resolved]
  - Atypical pneumonia [Not Recovered/Not Resolved]

NARRATIVE: CASE EVENT DATE: 20151105
